FAERS Safety Report 18997363 (Version 10)
Quarter: 2021Q3

REPORT INFORMATION
  Report Type: Spontaneous
  Country: US (occurrence: US)
  Receive Date: 20210311
  Receipt Date: 20210916
  Transmission Date: 20211014
  Serious: Yes (Hospitalization, Other)
  Sender: FDA-Public Use
  Company Number: US-ROCHE-2756366

PATIENT
  Sex: Female

DRUGS (5)
  1. TUKYSA [Suspect]
     Active Substance: TUCATINIB
     Indication: BREAST CANCER FEMALE
  2. HERCEPTIN [Suspect]
     Active Substance: TRASTUZUMAB
     Indication: PRODUCT USED FOR UNKNOWN INDICATION
     Route: 041
     Dates: start: 20210119
  3. TUKYSA [Suspect]
     Active Substance: TUCATINIB
     Indication: BREAST CANCER METASTATIC
  4. TUKYSA [Suspect]
     Active Substance: TUCATINIB
     Indication: BREAST CANCER FEMALE
     Route: 065
     Dates: start: 20210112
  5. XELODA [Suspect]
     Active Substance: CAPECITABINE
     Indication: PRODUCT USED FOR UNKNOWN INDICATION
     Route: 048
     Dates: start: 20210112

REACTIONS (26)
  - Limb injury [Unknown]
  - Skin abrasion [Unknown]
  - Abdominal discomfort [Unknown]
  - Oral pain [Unknown]
  - Gastritis [Unknown]
  - Lung neoplasm [Unknown]
  - Skin exfoliation [Unknown]
  - Palmar-plantar erythrodysaesthesia syndrome [Unknown]
  - Skin ulcer [Unknown]
  - Dry skin [Unknown]
  - Weight decreased [Unknown]
  - Cough [Recovered/Resolved]
  - Nausea [Unknown]
  - Decreased appetite [Unknown]
  - Nail disorder [Unknown]
  - Onychomadesis [Unknown]
  - Fatigue [Unknown]
  - Headache [Unknown]
  - COVID-19 [Unknown]
  - Erythema [Unknown]
  - Diarrhoea [Unknown]
  - White blood cell count decreased [Unknown]
  - Ill-defined disorder [Unknown]
  - Gastrooesophageal reflux disease [Unknown]
  - Retching [Unknown]
  - Nail bed bleeding [Unknown]
